FAERS Safety Report 6845527-8 (Version None)
Quarter: 2010Q3

REPORT INFORMATION
  Report Type: 
  Country: None (occurrence: None)
  Receive Date: 20100713
  Receipt Date: 20100709
  Transmission Date: 20110219
  Serious: Yes (Hospitalization, Disabling, Other)
  Sender: FDA-Public Use
  Company Number: 2009SP017681

PATIENT
  Age: 41 Year
  Sex: Female
  Weight: 47.6277 kg

DRUGS (9)
  1. NUVARING [Suspect]
     Indication: MENSTRUAL CYCLE MANAGEMENT
     Dosage: 1 DF;QM;VAG
     Route: 067
     Dates: start: 20031001
  2. NUVARING [Suspect]
     Indication: MENSTRUAL CYCLE MANAGEMENT
     Dosage: 1 DF;QM;VAG
     Route: 067
     Dates: start: 20040901
  3. NUVARING [Suspect]
     Indication: MENSTRUAL CYCLE MANAGEMENT
     Dosage: 1 DF;QM;VAG
     Route: 067
     Dates: start: 20050101
  4. TOPAMAX [Concomitant]
  5. NASACORT [Concomitant]
  6. AMITRIPTYLINE HYDROCHLORIDE [Concomitant]
  7. MAXALT [Concomitant]
  8. PARAFON [Concomitant]
  9. ACETAMINOPHEN [Concomitant]

REACTIONS (17)
  - AMINO ACID LEVEL INCREASED [None]
  - APHASIA [None]
  - BLOOD HOMOCYSTEINE DECREASED [None]
  - CEREBRAL ARTERY OCCLUSION [None]
  - CEREBRAL INFARCTION [None]
  - CEREBROVASCULAR ACCIDENT [None]
  - CONVULSION [None]
  - DEPRESSED LEVEL OF CONSCIOUSNESS [None]
  - DEPRESSION [None]
  - DRUG SCREEN POSITIVE [None]
  - DYSPHAGIA [None]
  - INTRACRANIAL PRESSURE INCREASED [None]
  - MIGRAINE [None]
  - PROTEIN C INCREASED [None]
  - PROTEIN S DECREASED [None]
  - UPPER LIMB FRACTURE [None]
  - VAGINAL DISCHARGE [None]
